FAERS Safety Report 18934981 (Version 1)
Quarter: 2021Q1

REPORT INFORMATION
  Report Type: Spontaneous
  Country: CH (occurrence: CH)
  Receive Date: 20210224
  Receipt Date: 20210224
  Transmission Date: 20210420
  Serious: Yes (Other)
  Sender: FDA-Public Use
  Company Number: CH-ASTRAZENECA-2021A060436

PATIENT
  Age: 30952 Day
  Sex: Female

DRUGS (13)
  1. CLEXANE [Concomitant]
     Active Substance: ENOXAPARIN SODIUM
     Dates: start: 202101
  2. VITAMIN D3 [Concomitant]
     Active Substance: CHOLECALCIFEROL
     Dates: start: 202101
  3. HALDOL [Concomitant]
     Active Substance: HALOPERIDOL
     Dosage: AS NECESSARY
     Dates: start: 202101
  4. CRESTOR [Suspect]
     Active Substance: ROSUVASTATIN CALCIUM
     Route: 048
     Dates: end: 20210116
  5. MORPHINE [Concomitant]
     Active Substance: MORPHINE
     Dates: start: 20210116, end: 20210118
  6. BELOC ZOK [Suspect]
     Active Substance: METOPROLOL SUCCINATE
     Route: 048
     Dates: end: 20210116
  7. CITALOPRAM [Suspect]
     Active Substance: CITALOPRAM HYDROBROMIDE
     Route: 048
     Dates: end: 20210116
  8. FLECTOR TISSUGEL EP [Concomitant]
     Dates: start: 20210119
  9. ASPIRIN CARDIO [Concomitant]
     Active Substance: ASPIRIN
  10. LAXOBERON [Concomitant]
     Active Substance: SODIUM PICOSULFATE
     Dates: start: 202101
  11. AMLODIPINE [Concomitant]
     Active Substance: AMLODIPINE BESYLATE
     Dates: start: 20210116
  12. XALATAN [Concomitant]
     Active Substance: LATANOPROST
  13. HYDROMORPHONE [Concomitant]
     Active Substance: HYDROMORPHONE
     Dates: start: 20210118

REACTIONS (1)
  - Hepatocellular injury [Recovering/Resolving]

NARRATIVE: CASE EVENT DATE: 20210115
